FAERS Safety Report 13273853 (Version 2)
Quarter: 2017Q3

REPORT INFORMATION
  Report Type: Spontaneous
  Country: IT (occurrence: IT)
  Receive Date: 20170227
  Receipt Date: 20170721
  Transmission Date: 20171127
  Serious: Yes (Hospitalization, Other)
  Sender: FDA-Public Use
  Company Number: IT-SA-2017SA031706

PATIENT
  Age: 82 Year
  Sex: Female

DRUGS (11)
  1. XARELTO [Suspect]
     Active Substance: RIVAROXABAN
     Indication: ATRIAL FIBRILLATION
     Route: 048
     Dates: start: 20160618, end: 20170130
  2. CLEXANE [Suspect]
     Active Substance: ENOXAPARIN SODIUM
     Route: 051
  3. CLEXANE [Suspect]
     Active Substance: ENOXAPARIN SODIUM
     Route: 051
     Dates: start: 20161231, end: 20170112
  4. CLEXANE [Suspect]
     Active Substance: ENOXAPARIN SODIUM
     Route: 051
     Dates: start: 20170112, end: 20170130
  5. LASIX [Concomitant]
     Active Substance: FUROSEMIDE
     Route: 065
     Dates: end: 20170129
  6. SIMVASTATIN. [Concomitant]
     Active Substance: SIMVASTATIN
     Route: 065
     Dates: end: 20170129
  7. PRITOR [Concomitant]
     Active Substance: TELMISARTAN
     Route: 065
     Dates: end: 20170129
  8. LANSOX [Concomitant]
     Active Substance: LANSOPRAZOLE
     Route: 065
     Dates: end: 20170129
  9. SEQUACOR [Concomitant]
     Active Substance: BISOPROLOL
     Route: 065
     Dates: end: 20170129
  10. LANTUS [Concomitant]
     Active Substance: INSULIN GLARGINE
     Route: 065
     Dates: end: 20170129
  11. NOVORAPID [Concomitant]
     Active Substance: INSULIN ASPART
     Route: 065
     Dates: end: 20170129

REACTIONS (5)
  - Melaena [Recovered/Resolved]
  - Gastrointestinal haemorrhage [Recovered/Resolved]
  - Occult blood positive [Recovering/Resolving]
  - Anaemia [Recovering/Resolving]
  - Ischaemic stroke [Recovering/Resolving]

NARRATIVE: CASE EVENT DATE: 20170122
